FAERS Safety Report 8525227-9 (Version None)
Quarter: 2012Q3

REPORT INFORMATION
  Report Type: 
  Country: None (occurrence: None)
  Receive Date: 20120720
  Receipt Date: 20120716
  Transmission Date: 20120928
  Serious: Yes (Hospitalization, Other)
  Sender: FDA-Public Use
  Company Number: PHHY2012DE051046

PATIENT
  Sex: Female

DRUGS (16)
  1. RASILEZ [Suspect]
     Dosage: 150 MG, PER DAY
  2. PLAVIX [Concomitant]
  3. PREDNISONE TAB [Concomitant]
  4. NORVASC [Concomitant]
  5. AMLODIPINE [Concomitant]
     Route: 048
     Dates: start: 20060101, end: 20100710
  6. HUMALOG [Concomitant]
     Indication: DIABETES MELLITUS
     Dosage: 4 TIMES/DAY (UNKNOWN DOSE)
     Route: 058
     Dates: start: 19950101
  7. RAMIPRIL [Suspect]
     Route: 048
     Dates: start: 20060101, end: 20100710
  8. TORSEMIDE [Concomitant]
     Dosage: 10 MG, BID
  9. MOXONIDINE [Concomitant]
  10. THYREOIDIN [Concomitant]
  11. RASILEZ [Suspect]
     Dosage: 300 MG 1 DF, QD
     Route: 048
     Dates: start: 20090101
  12. HYDROCHLOROTHIAZIDE [Suspect]
  13. ATACAND [Suspect]
     Dosage: 4 MG, UNK
     Route: 048
     Dates: start: 20060101
  14. LANTUS [Concomitant]
     Dosage: UNKNOWN DOSE ONCE A DAY
     Route: 058
     Dates: start: 19950101
  15. BIOLOGICA [Suspect]
  16. EZETIMIBE [Concomitant]

REACTIONS (2)
  - UROSEPSIS [None]
  - RHEUMATOID ARTHRITIS [None]
